FAERS Safety Report 24625687 (Version 3)
Quarter: 2025Q3

REPORT INFORMATION
  Report Type: Spontaneous
  Country: EU (occurrence: EU)
  Receive Date: 20241115
  Receipt Date: 20250803
  Transmission Date: 20251021
  Serious: Yes (Hospitalization, Other)
  Sender: ALEXION PHARMACEUTICALS
  Company Number: EU-AstraZeneca-CH-00720908AM

PATIENT
  Age: 54 Year
  Sex: Female
  Weight: 67 kg

DRUGS (11)
  1. LYNPARZA [Suspect]
     Active Substance: OLAPARIB
     Indication: Ovarian cancer
     Dosage: 100 MILLIGRAM, BID
     Dates: start: 20240626, end: 20240724
  2. ERYTHROPOIETIN [Concomitant]
     Active Substance: ERYTHROPOIETIN
  3. PREGABALIN [Concomitant]
     Active Substance: PREGABALIN
  4. CETIRIZINE HYDROCHLORIDE [Concomitant]
     Active Substance: CETIRIZINE HYDROCHLORIDE
  5. PANTOPRAZOLE SODIUM [Concomitant]
     Active Substance: PANTOPRAZOLE SODIUM
  6. FLUOXETINE HYDROCHLORIDE [Concomitant]
     Active Substance: FLUOXETINE HYDROCHLORIDE
  7. ALPHA LIPOIC ACID [Concomitant]
     Active Substance: .ALPHA.-LIPOIC ACID
  8. Selenase [Concomitant]
  9. MAGNESIUM [Concomitant]
     Active Substance: MAGNESIUM
  10. Oleovit [Concomitant]
  11. FOLIC ACID [Concomitant]
     Active Substance: FOLIC ACID

REACTIONS (15)
  - Leukopenia [Unknown]
  - Thrombocytopenia [Unknown]
  - Haemoglobin decreased [Recovered/Resolved]
  - Nausea [Unknown]
  - Diarrhoea [Unknown]
  - Fatigue [Unknown]
  - Product use issue [Unknown]
  - Vomiting [Unknown]
  - Dizziness [Unknown]
  - Circulatory collapse [Unknown]
  - Asthenia [Unknown]
  - Pain in extremity [Unknown]
  - Headache [Unknown]
  - Tinnitus [Unknown]
  - Migraine [Unknown]

NARRATIVE: CASE EVENT DATE: 20240628
